FAERS Safety Report 4603316-9 (Version None)
Quarter: 2005Q1

REPORT INFORMATION
  Report Type: 
  Country: None (occurrence: None)
  Receive Date: 20050307
  Receipt Date: 20050221
  Transmission Date: 20050727
  Serious: Yes (Life-Threatening, Hospitalization)
  Sender: FDA-Public Use
  Company Number: 2005036889

PATIENT
  Age: 63 Year
  Sex: Female
  Weight: 113 kg

DRUGS (2)
  1. BEXTRA [Suspect]
     Indication: ARTHRALGIA
     Dosage: 40 MG (20 MG, 2 IN 1 D), ORAL
     Route: 048
     Dates: start: 20040403
  2. CAPTOPRIL [Concomitant]

REACTIONS (7)
  - ACUTE LEFT VENTRICULAR FAILURE [None]
  - GASTRITIS EROSIVE [None]
  - HAEMOPTYSIS [None]
  - HEART RATE INCREASED [None]
  - HYPERTENSION [None]
  - PULMONARY OEDEMA [None]
  - VENTRICULAR HYPERTROPHY [None]
